FAERS Safety Report 13241368 (Version 1)
Quarter: 2017Q1

REPORT INFORMATION
  Report Type: Spontaneous
  Country: US (occurrence: US)
  Receive Date: 20170216
  Receipt Date: 20170216
  Transmission Date: 20170428
  Serious: Yes (Hospitalization)
  Sender: FDA-Public Use
  Company Number: None

PATIENT
  Age: 18 Year
  Sex: Female
  Weight: 69.9 kg

DRUGS (6)
  1. ONCASPAR [Suspect]
     Active Substance: PEGASPARGASE
     Dates: end: 20170122
  2. CYTARABINE. [Suspect]
     Active Substance: CYTARABINE
     Dates: end: 20170118
  3. PREDNISONE. [Suspect]
     Active Substance: PREDNISONE
     Dates: end: 20170107
  4. VINCRISTINE SULFATE. [Suspect]
     Active Substance: VINCRISTINE SULFATE
     Dates: end: 20170202
  5. DAUNORUBICIN [Suspect]
     Active Substance: DAUNORUBICIN
     Dates: end: 20170202
  6. METHOTREXATE. [Suspect]
     Active Substance: METHOTREXATE
     Dates: start: 20170126

REACTIONS (18)
  - White blood cell count decreased [None]
  - Haemoglobin decreased [None]
  - Blood bilirubin increased [None]
  - Pyrexia [None]
  - Blood pressure decreased [None]
  - Blood sodium decreased [None]
  - Blood bicarbonate decreased [None]
  - Chills [None]
  - Haematocrit decreased [None]
  - Alanine aminotransferase increased [None]
  - Arthralgia [None]
  - Blood calcium decreased [None]
  - Aspartate aminotransferase increased [None]
  - Neutrophil count decreased [None]
  - Platelet count decreased [None]
  - Protein total decreased [None]
  - Blood lactic acid increased [None]
  - Blood chloride decreased [None]

NARRATIVE: CASE EVENT DATE: 20170206
